FAERS Safety Report 18378103 (Version 2)
Quarter: 2020Q4

REPORT INFORMATION
  Report Type: Report from Study
  Country: US (occurrence: US)
  Receive Date: 20201013
  Receipt Date: 20201030
  Transmission Date: 20210114
  Serious: Yes (Hospitalization)
  Sender: FDA-Public Use
  Company Number: US-MYLANLABS-2020M1085937

PATIENT
  Age: 40 Year
  Sex: Female

DRUGS (5)
  1. FEXOFENADINE [Concomitant]
     Active Substance: FEXOFENADINE HYDROCHLORIDE
     Indication: PROPHYLAXIS
     Dosage: 60 MILLIGRAM THE NIGHT BEFORE AND IMMEDIATELY PRIOR TO EACH PEGLOTICASE INFUSION
     Route: 048
  2. FOLIC ACID. [Concomitant]
     Active Substance: FOLIC ACID
     Indication: PROPHYLAXIS
     Dosage: 1 MILLIGRAM, QD FOR THE DURATION OF PEGLOTICASE THERAPY
     Route: 048
  3. METHOTREXATE. [Suspect]
     Active Substance: METHOTREXATE
     Indication: GOUT
     Dosage: 25 MILLIGRAM, QW
     Route: 058
  4. PEGLOTICASE [Concomitant]
     Active Substance: PEGLOTICASE
     Indication: GOUT
     Dosage: 8 MILLIGRAM, BIWEEKLY
  5. SOLU-MEDROL [Concomitant]
     Active Substance: METHYLPREDNISOLONE SODIUM SUCCINATE
     Indication: PROPHYLAXIS
     Dosage: 125 MILLIGRAM IMMEDIATELY PRIOR TO EACH..
     Route: 042

REACTIONS (3)
  - Pancytopenia [Recovering/Resolving]
  - Off label use [Unknown]
  - Liver function test increased [Recovered/Resolved]
